FAERS Safety Report 4410427-X (Version None)
Quarter: 2004Q3

REPORT INFORMATION
  Report Type: 
  Country: None (occurrence: None)
  Receive Date: 20040727
  Receipt Date: 20040716
  Transmission Date: 20050211
  Serious: Yes (Other)
  Sender: FDA-Public Use
  Company Number: 2004-07-0683

PATIENT
  Age: 24 Year
  Sex: Female

DRUGS (1)
  1. TEMODAL [Suspect]
     Indication: ASTROCYTOMA
     Dosage: ORAL
     Route: 048

REACTIONS (2)
  - CYSTITIS HAEMORRHAGIC [None]
  - URINARY INCONTINENCE [None]
